FAERS Safety Report 7393900-4 (Version None)
Quarter: 2011Q2

REPORT INFORMATION
  Report Type: 
  Country: None (occurrence: None)
  Receive Date: 20110405
  Receipt Date: 20110328
  Transmission Date: 20111010
  Serious: Yes (Other)
  Sender: FDA-Public Use
  Company Number: US-ASTRAZENECA-2011SE17360

PATIENT
  Age: 14883 Day
  Sex: Female

DRUGS (1)
  1. SEROQUEL [Suspect]
     Dosage: 25 MG, 2 TABLETS PO HS
     Route: 048
     Dates: start: 20030123

REACTIONS (5)
  - DIABETIC RETINOPATHY [None]
  - DIABETES MELLITUS [None]
  - COLITIS [None]
  - HAEMORRHOIDS [None]
  - PROCTITIS [None]
